FAERS Safety Report 23219227 (Version 1)
Quarter: 2023Q4

REPORT INFORMATION
  Report Type: Spontaneous
  Country: US (occurrence: US)
  Receive Date: 20231122
  Receipt Date: 20231122
  Transmission Date: 20240110
  Serious: Yes (Other)
  Sender: FDA-Public Use
  Company Number: US-RADIUS HEALTH INC.-2023US005901

PATIENT
  Sex: Female
  Weight: 59.864 kg

DRUGS (15)
  1. TYMLOS [Suspect]
     Active Substance: ABALOPARATIDE
     Indication: Senile osteoporosis
     Dosage: 80 MICROGRAM, QD
     Route: 058
  2. TYMLOS [Suspect]
     Active Substance: ABALOPARATIDE
     Indication: Illness
  3. TYMLOS [Suspect]
     Active Substance: ABALOPARATIDE
     Indication: Polyneuropathy
  4. TYMLOS [Suspect]
     Active Substance: ABALOPARATIDE
     Indication: Gastrooesophageal reflux disease
  5. TYMLOS [Suspect]
     Active Substance: ABALOPARATIDE
     Indication: Coeliac disease
  6. TYMLOS [Suspect]
     Active Substance: ABALOPARATIDE
     Indication: Colitis ulcerative
  7. TYMLOS [Suspect]
     Active Substance: ABALOPARATIDE
     Indication: Type 2 diabetes mellitus
  8. TYMLOS [Suspect]
     Active Substance: ABALOPARATIDE
     Indication: Diabetic neuropathy
  9. CALCIUM CARBONATE\MAGNESIUM CARBONATE [Concomitant]
     Active Substance: CALCIUM CARBONATE\MAGNESIUM CARBONATE
     Indication: Product used for unknown indication
  10. LYUMJEV [Concomitant]
     Active Substance: INSULIN LISPRO-AABC
     Indication: Product used for unknown indication
     Dosage: UNK
  11. LOSARTAN POTASSIUM [Concomitant]
     Active Substance: LOSARTAN POTASSIUM
     Indication: Product used for unknown indication
  12. ENTYVIO [Concomitant]
     Active Substance: VEDOLIZUMAB
     Indication: Product used for unknown indication
  13. DULOXETINE HYDROCHLORIDE [Concomitant]
     Active Substance: DULOXETINE HYDROCHLORIDE
     Indication: Product used for unknown indication
     Dosage: 30 MG
  14. DULOXETINE HYDROCHLORIDE [Concomitant]
     Active Substance: DULOXETINE HYDROCHLORIDE
     Dosage: 20 MG
  15. PANTOPRAZOLE SODIUM [Concomitant]
     Active Substance: PANTOPRAZOLE SODIUM
     Indication: Product used for unknown indication

REACTIONS (1)
  - Hypotension [Unknown]
